FAERS Safety Report 5842198-4 (Version None)
Quarter: 2008Q3

REPORT INFORMATION
  Report Type: 
  Country: None (occurrence: None)
  Receive Date: 20080812
  Receipt Date: 20080805
  Transmission Date: 20090109
  Serious: Yes (Other)
  Sender: FDA-Public Use
  Company Number: CA-JNJCH-2008020608

PATIENT
  Age: 61 Year
  Sex: Female

DRUGS (1)
  1. LISTERINE WHITENING PRE-BRUSH RINSE [Suspect]
     Indication: DENTAL CARE
     Dosage: TEXT:2 X DAILY
     Route: 048

REACTIONS (3)
  - APPLICATION SITE BURN [None]
  - HYPOAESTHESIA ORAL [None]
  - TONGUE BLACK HAIRY [None]
